FAERS Safety Report 8963563 (Version 1)
Quarter: 2012Q4

REPORT INFORMATION
  Report Type: 
  Country: DE (occurrence: DE)
  Receive Date: 20121214
  Receipt Date: 20121214
  Transmission Date: 20130627
  Serious: Yes (Hospitalization)
  Sender: FDA-Public Use
  Company Number: DE-PFIZER INC-2012313938

PATIENT
  Age: 65 Year
  Sex: Female
  Weight: 58 kg

DRUGS (1)
  1. GENOTROPIN [Suspect]
     Dosage: 0.4 mg, 1x/day,7 injections/week
     Route: 058
     Dates: start: 20091115

REACTIONS (1)
  - Sudden hearing loss [Unknown]
